FAERS Safety Report 4992827-2 (Version None)
Quarter: 2006Q2

REPORT INFORMATION
  Report Type: 
  Country: None (occurrence: None)
  Receive Date: 20060504
  Receipt Date: 20051208
  Transmission Date: 20061013
  Serious: Yes (Hospitalization)
  Sender: FDA-Public Use
  Company Number: US-MERCK-0512USA01597

PATIENT
  Age: 73 Year
  Sex: Female
  Weight: 63 kg

DRUGS (10)
  1. VIOXX [Suspect]
     Indication: ARTHRALGIA
     Route: 048
     Dates: start: 19991006, end: 20010912
  2. VIOXX [Suspect]
     Indication: BACK PAIN
     Route: 048
     Dates: start: 19991006, end: 20010912
  3. FOSAMAX [Concomitant]
     Route: 065
  4. ZOCOR [Concomitant]
     Route: 065
  5. VASOTEC [Concomitant]
     Route: 065
  6. NORVASC [Concomitant]
     Route: 065
  7. LOVENOX [Concomitant]
     Route: 065
  8. ULTRAM [Concomitant]
     Route: 065
  9. ZOLOFT [Concomitant]
     Route: 065
  10. VOLTAREN [Concomitant]
     Route: 065

REACTIONS (9)
  - ANXIETY [None]
  - CEREBROVASCULAR ACCIDENT [None]
  - DEPRESSION [None]
  - DRUG INEFFECTIVE [None]
  - HYPERLIPIDAEMIA [None]
  - HYPERTENSIVE HEART DISEASE [None]
  - ISCHAEMIC STROKE [None]
  - LUMBAR RADICULOPATHY [None]
  - PERIPHERAL VASCULAR DISORDER [None]
